FAERS Safety Report 20665143 (Version 2)
Quarter: 2022Q2

REPORT INFORMATION
  Report Type: Spontaneous
  Country: US (occurrence: US)
  Receive Date: 20220401
  Receipt Date: 20220526
  Transmission Date: 20220721
  Serious: Yes (Death, Other)
  Sender: FDA-Public Use
  Company Number: US-INCYTE CORPORATION-2022IN003213

PATIENT

DRUGS (1)
  1. JAKAFI [Suspect]
     Active Substance: RUXOLITINIB
     Indication: Myelofibrosis
     Dosage: 10 MILLIGRAM, BID
     Route: 048
     Dates: start: 20210927, end: 20220317

REACTIONS (10)
  - Death [Fatal]
  - Cachexia [Unknown]
  - Multiple organ dysfunction syndrome [Unknown]
  - Hypoxia [Unknown]
  - Ventricular arrhythmia [Unknown]
  - Mental status changes [Unknown]
  - Fall [Unknown]
  - Paranoia [Unknown]
  - Memory impairment [Unknown]
  - Diarrhoea [Unknown]

NARRATIVE: CASE EVENT DATE: 20220330
